FAERS Safety Report 6965202-9 (Version None)
Quarter: 2010Q3

REPORT INFORMATION
  Report Type: 
  Country: None (occurrence: None)
  Receive Date: 20100903
  Receipt Date: 20100826
  Transmission Date: 20110219
  Serious: Yes (Other)
  Sender: FDA-Public Use
  Company Number: US-SHIRE-ALL1-2010-04167

PATIENT

DRUGS (1)
  1. VYVANSE [Suspect]
     Indication: ATTENTION DEFICIT/HYPERACTIVITY DISORDER
     Dosage: UNK MG, 1X/DAY:QD REPORTED AS  30 TO 50 MG DAILY
     Route: 048
     Dates: start: 20070814, end: 20090103

REACTIONS (1)
  - LIVER FUNCTION TEST ABNORMAL [None]
